FAERS Safety Report 16687621 (Version 2)
Quarter: 2019Q4

REPORT INFORMATION
  Report Type: Spontaneous
  Country: JP (occurrence: JP)
  Receive Date: 20190809
  Receipt Date: 20191106
  Transmission Date: 20200122
  Serious: Yes (Other)
  Sender: FDA-Public Use
  Company Number: JP-SUNOVION-2019SUN003227

PATIENT
  Age: 49 Year
  Sex: Female

DRUGS (6)
  1. DEPAS [DICLOFENAC\DICYCLOVERINE] [Suspect]
     Active Substance: DICLOFENAC\DICYCLOMINE
     Dosage: UNK UNK, SINGLE
     Route: 048
     Dates: start: 20190729, end: 20190729
  2. LUNESTA [Suspect]
     Active Substance: ESZOPICLONE
     Dosage: 12 MG, SINGLE
     Route: 048
     Dates: start: 20190729, end: 20190729
  3. ANAFRANIL [Suspect]
     Active Substance: CLOMIPRAMINE HYDROCHLORIDE
     Dosage: UNK UNK, SINGLE
     Route: 048
     Dates: start: 20190729, end: 20190729
  4. LANDSEN [Suspect]
     Active Substance: CLONAZEPAM
     Dosage: UNK UNK, SINGLE
     Route: 048
     Dates: start: 20190729, end: 20190729
  5. HALCION [Suspect]
     Active Substance: TRIAZOLAM
     Dosage: UNK UNK, SINGLE
     Route: 048
     Dates: start: 20190729, end: 20190729
  6. TRYPTANOL [Suspect]
     Active Substance: AMITRIPTYLINE
     Dosage: UNK, SINGLE
     Route: 048
     Dates: start: 20190729, end: 20190729

REACTIONS (3)
  - Suicide attempt [Recovered/Resolved]
  - Overdose [Unknown]
  - Coma [Recovered/Resolved]

NARRATIVE: CASE EVENT DATE: 20190729
